FAERS Safety Report 16799259 (Version 6)
Quarter: 2020Q4

REPORT INFORMATION
  Report Type: Spontaneous
  Country: US (occurrence: US)
  Receive Date: 20190912
  Receipt Date: 20201029
  Transmission Date: 20210113
  Serious: No
  Sender: FDA-Public Use
  Company Number: US-PFIZER INC-2016346141

PATIENT
  Age: 64 Year
  Sex: Female
  Weight: 77 kg

DRUGS (65)
  1. LYRICA [Suspect]
     Active Substance: PREGABALIN
     Indication: NEURALGIA
     Dosage: 75 MG, 3X/DAY
     Route: 048
  2. ALTACE [Concomitant]
     Active Substance: RAMIPRIL
     Dosage: 5 MG, 1X/DAY
     Route: 048
  3. NORCO [Concomitant]
     Active Substance: ACETAMINOPHEN\HYDROCODONE BITARTRATE
     Indication: PAIN
     Dosage: 1 DF, AS NEEDED [5-325 MG, HYDROCODONE BITARTRATE 5 MG]/ [PARACETAMOL 325 MG], 1 TAB EVERY 6 HOURS
     Route: 048
  4. NORVASC [Concomitant]
     Active Substance: AMLODIPINE BESYLATE
     Dosage: 5 MG, DAILY
     Route: 048
  5. PREDNISONE. [Concomitant]
     Active Substance: PREDNISONE
     Dosage: 60 MG, 1X/DAY (3 TABLETS (60 MG TOTAL) BY MOUTH 1 TIME PER DAY FOR 10 DAYS TAKE AFTER BREAKFAST)
     Route: 048
  6. TYLENOL ARTHRITIS PAIN [Concomitant]
     Active Substance: ACETAMINOPHEN
     Dosage: 650 MG, AS NEEDED (EVERY 8 HOURS AS NEEDED)
     Route: 048
  7. FLONASE [Concomitant]
     Active Substance: FLUTICASONE PROPIONATE
     Dosage: 50 UG, 2X/DAY (SPRAY 1 SPRAY INTO EACH NOSTRIL)
  8. PROVENTIL [Concomitant]
     Active Substance: ALBUTEROL
     Indication: WHEEZING
  9. PROAIR HFA [Concomitant]
     Active Substance: ALBUTEROL SULFATE
     Indication: WHEEZING
  10. VENTOLIN [Concomitant]
     Active Substance: ALBUTEROL SULFATE
     Indication: COUGH
  11. DELTASONE [Concomitant]
     Active Substance: PREDNISONE
     Dosage: 20 MG, DAILY (DAILY FOR ONE WEEK)
  12. DUONEB [Concomitant]
     Active Substance: ALBUTEROL SULFATE\IPRATROPIUM BROMIDE
     Dosage: 1 DF, 4X/DAY (ALBUTEROL 2.5 MG/IPRATROPIUM 0.5 ML)/3 ML (1 VIAL INTO LUNG)
     Route: 055
  13. NORVASC [Concomitant]
     Active Substance: AMLODIPINE BESYLATE
     Dosage: 10 MG, 1X/DAY
     Route: 048
     Dates: end: 20160708
  14. PERFOROMIST [Concomitant]
     Active Substance: FORMOTEROL FUMARATE DIHYDRATE
     Dosage: 20 UG, 2X/DAY (INHALE 20 MCG INTO THE LUNGS 2 TIMES DAILY)
     Route: 055
  15. PERFOROMIST [Concomitant]
     Active Substance: FORMOTEROL FUMARATE DIHYDRATE
     Dosage: 20 UG, 2X/DAY (1 INHALE 1 NEBULE (20 MCG TOTAL) BY NEBULIZATION 2 TIMES A DAY)
  16. PREDNISONE. [Concomitant]
     Active Substance: PREDNISONE
     Dosage: ( 5MG AND 1 MG TABS: 10 MG DAILY X 1 MONTH)10 MG, DAILY
  17. PREDNISONE. [Concomitant]
     Active Substance: PREDNISONE
     Dosage: 9 MG, DAILY ((5MG AND 1 MG TABS: 9 MG DAILY X 1 MONTH))
  18. REQUIP [Concomitant]
     Active Substance: ROPINIROLE HYDROCHLORIDE
     Dosage: 3 MG, 2X/DAY
     Route: 048
  19. RECLAST [Concomitant]
     Active Substance: ZOLEDRONIC ACID
     Dosage: 5 MG, UNK (INJECT 5 MG INTO THE VEIN ONCE A YEAR,5 MG/100 ML )
     Route: 042
  20. TYLENOL [Concomitant]
     Active Substance: ACETAMINOPHEN
     Indication: PAIN
     Dosage: 1000 MG, 3X/DAY
     Route: 048
  21. KEFLEX [Concomitant]
     Active Substance: CEPHALEXIN
     Dosage: 500 MG, 3X/DAY
     Route: 048
  22. LYRICA [Suspect]
     Active Substance: PREGABALIN
     Indication: RESTLESS LEGS SYNDROME
     Dosage: 50 MG, 1X/DAY (1 CAP PO NIGHT)
     Route: 048
  23. PRINIVIL [Concomitant]
     Active Substance: LISINOPRIL
     Indication: HYPERTENSION
     Dosage: 20 MG, DAILY
     Route: 048
  24. ZESTRIL [Concomitant]
     Active Substance: LISINOPRIL
     Indication: HYPERTENSION
     Dosage: 20 MG, DAILY
     Route: 048
  25. THEO-DUR [Concomitant]
     Active Substance: THEOPHYLLINE ANHYDROUS
     Dosage: 300 MG, 1X/DAY (TAKE ONE TABLET BY MOUTH AT BEDTIME)
     Route: 048
  26. PLAQUENIL [Concomitant]
     Active Substance: HYDROXYCHLOROQUINE SULFATE
     Dosage: 400 MG, 1X/DAY
     Route: 048
  27. DURAGESIC [Concomitant]
     Active Substance: FENTANYL
     Dosage: 1 DF, UNK (PLACE 1 PATCH ON TO THE SKIN EVERY 72 HOURS)
     Route: 061
  28. LEXAPRO [Concomitant]
     Active Substance: ESCITALOPRAM OXALATE
     Dosage: 20 MG, DAILY (ONE-HALF TABLET BY MOUTH TWICE DAILY)
     Route: 048
  29. PHENADOZ [Concomitant]
     Active Substance: PROMETHAZINE HYDROCHLORIDE
     Indication: NAUSEA
     Dosage: 25 MG, AS NEEDED (EVERY 4 HOURS AS NEEDED)
     Route: 054
  30. PREDNISONE. [Concomitant]
     Active Substance: PREDNISONE
     Dosage: 10 MG, DAILY ( 5MG AND 1 MG TABS: 10 MG DAILY X 1 MONTH)
  31. PREDNISONE. [Concomitant]
     Active Substance: PREDNISONE
     Dosage: 8 MG, DAILY (5MG AND 1 MG TABS:8 MG DAILY )
  32. PULMICORT TURBUHALER [Concomitant]
     Active Substance: BUDESONIDE
     Dosage: UNK, 2X/DAY (USE ONE VAIL IN NEBULIZER, 0.5 MG/2ML )
  33. ROPINIROLE. [Concomitant]
     Active Substance: ROPINIROLE
     Dosage: 3 MG, UNK
  34. XOPENEX [Concomitant]
     Active Substance: LEVALBUTEROL HYDROCHLORIDE
     Indication: DYSPNOEA
     Dosage: 1 DF, AS NEEDED (1 AMPULE BY NEBULIZATION EVERY 2 HOURS)
  35. LYRICA [Suspect]
     Active Substance: PREGABALIN
     Indication: RHEUMATOID ARTHRITIS
     Dosage: 75 MG, 2X/DAY
     Route: 048
     Dates: start: 20161129
  36. DURAGESIC [Concomitant]
     Active Substance: FENTANYL
     Dosage: 25 UG, DAILY (APPLY 1 PATCH (25 MCG TOTAL) TO THE SKIN EVERY 72 HOURS EARLIEST FILL)
     Dates: start: 20170122
  37. SINGULAIR [Concomitant]
     Active Substance: MONTELUKAST SODIUM
     Dosage: 10 MG, 1X/DAY (TAKE 10 MG BY MOUTH NIGHTLY)
     Route: 048
  38. MAXALT-MLT [Concomitant]
     Active Substance: RIZATRIPTAN BENZOATE
     Indication: MIGRAINE
     Dosage: 10 MG, AS NEEDED (MOUTH 6 HOURS AS NEEDED)
     Route: 048
  39. PRAVACHOL [Concomitant]
     Active Substance: PRAVASTATIN SODIUM
     Dosage: 40 MG, 1X/DAY
     Route: 048
  40. ATIVAN [Concomitant]
     Active Substance: LORAZEPAM
     Indication: ANXIETY
     Dosage: 1 MG, AS NEEDED (TAKE 1 MG BY MOUTH 3 TIMES DAILY AS NEEDED)
     Route: 048
  41. ATIVAN [Concomitant]
     Active Substance: LORAZEPAM
     Dosage: 1 MG, AS NEEDED (4 TIMES A DAY AS NEEDED FOR ANXIETY)
     Route: 048
  42. BROVANA [Concomitant]
     Active Substance: ARFORMOTEROL TARTRATE
     Dosage: 1 DF, 2X/DAY (TAKE 1 VIAL BY NEBULIZATION/15 MCG/2ML)
     Route: 055
  43. CEFTIN [Concomitant]
     Active Substance: CEFUROXIME AXETIL
     Dosage: 500 MG, 2X/DAY (FOR 7 DAYS)
     Route: 048
  44. MUCINEX [Concomitant]
     Active Substance: GUAIFENESIN
     Dosage: 600 MG, 2X/DAY
     Route: 048
  45. MAXALT-MLT [Concomitant]
     Active Substance: RIZATRIPTAN BENZOATE
     Indication: HEADACHE
  46. PRILOSEC [Concomitant]
     Active Substance: OMEPRAZOLE MAGNESIUM
     Dosage: 40 MG, DAILY (TAKE ONE CAPSULE BY MOUTH IN THE MORNING)
     Route: 048
  47. PRAVACHOL [Concomitant]
     Active Substance: PRAVASTATIN SODIUM
     Dosage: 40 MG, DAILY
     Route: 048
  48. PREDNISONE. [Concomitant]
     Active Substance: PREDNISONE
     Dosage: 8 MG, DAILY (5MG AND 1 MG TABS:8 MG DAILY )
  49. XOPENEX [Concomitant]
     Active Substance: LEVALBUTEROL HYDROCHLORIDE
     Dosage: UNK, AS NEEDED (NEBULIZATION EVERY 2 HOURS AS NEEDED/0.63 MG/3ML )
  50. LYRICA [Suspect]
     Active Substance: PREGABALIN
     Indication: BACK PAIN
     Dosage: 75 MG, 1X/DAY (ONE CAP BY MOUTH NIGHTLY)
     Route: 048
  51. DELTASONE [Concomitant]
     Active Substance: PREDNISONE
     Dosage: 30 MG, DAILY (DAILY FOR ONE WEEK)
  52. DUONEB [Concomitant]
     Active Substance: ALBUTEROL SULFATE\IPRATROPIUM BROMIDE
     Indication: DYSPNOEA
     Dosage: 1 DF, AS NEEDED [ALBUTEROL 2.5 MG]/ [IPRATROPIUM 0.5 ML] /3 ML (ONE VIAL IN NEBULIZER FOUR TIMES DAY
     Route: 055
  53. LOPRESSOR [Concomitant]
     Active Substance: METOPROLOL TARTRATE
     Dosage: 50 MG, 2X/DAY
     Route: 048
  54. PROAIR HFA [Concomitant]
     Active Substance: ALBUTEROL SULFATE
     Indication: COUGH
  55. DELTASONE [Concomitant]
     Active Substance: PREDNISONE
     Dosage: 10 MG, DAILY
  56. K-TAB [Concomitant]
     Active Substance: POTASSIUM CHLORIDE
     Dosage: 10 MEQ, 2X/DAY
     Route: 048
  57. LOSARTAN. [Concomitant]
     Active Substance: LOSARTAN
     Dosage: 50 MG, 1X/DAY
     Route: 048
  58. PHENERGAN [Concomitant]
     Active Substance: PROMETHAZINE HYDROCHLORIDE
     Dosage: 25 MG, AS NEEDED(PLACE 25 MG RECTALLY EVERY 4 HOURS AS NEEDED)
     Route: 054
  59. PREDNISONE. [Concomitant]
     Active Substance: PREDNISONE
     Dosage: 9 MG, DAILY (5MG AND 1 MG TABS: 9 MG DAILY X 1 MONTH)
  60. THEO-24 [Concomitant]
     Active Substance: THEOPHYLLINE ANHYDROUS
     Dosage: 300 MG, DAILY
     Route: 048
  61. PROVENTIL [Concomitant]
     Active Substance: ALBUTEROL
     Indication: DYSPNOEA
     Dosage: 2 DF, AS NEEDED (INHALE 2 PUFFS ORALLY EVERY 4 TO 6 HOURS)
     Route: 048
  62. PROVENTIL [Concomitant]
     Active Substance: ALBUTEROL
     Indication: COUGH
  63. PROAIR HFA [Concomitant]
     Active Substance: ALBUTEROL SULFATE
     Indication: DYSPNOEA
     Dosage: 2 DF, AS NEEDED (INHALE 2 PUFFS ORALLY EVERY 4 TO 6 HOURS)
     Route: 048
  64. VENTOLIN [Concomitant]
     Active Substance: ALBUTEROL SULFATE
     Indication: DYSPNOEA
     Dosage: 2 DF, AS NEEDED (INHALE 2 PUFFS ORALLY EVERY 4 TO 6 HOURS)
     Route: 048
  65. VENTOLIN [Concomitant]
     Active Substance: ALBUTEROL SULFATE
     Indication: WHEEZING

REACTIONS (1)
  - Drug ineffective [Unknown]
